FAERS Safety Report 9693310 (Version 2)
Quarter: 2013Q4

REPORT INFORMATION
  Report Type: Report from Study
  Country: CL (occurrence: CL)
  Receive Date: 20131118
  Receipt Date: 20131118
  Transmission Date: 20140711
  Serious: Yes (Other)
  Sender: FDA-Public Use
  Company Number: CL-ROCHE-1264536

PATIENT
  Age: 60 Year
  Sex: Female
  Weight: 82 kg

DRUGS (1)
  1. XELODA [Suspect]
     Indication: BREAST CANCER
     Dosage: 14-DAY-CYCLE
     Route: 048
     Dates: start: 20130513, end: 20131108

REACTIONS (5)
  - Vomiting [Recovered/Resolved]
  - Dehydration [Recovered/Resolved]
  - Blood pressure increased [Recovered/Resolved]
  - Metastases to bone [Not Recovered/Not Resolved]
  - Blood pressure increased [Recovering/Resolving]
